FAERS Safety Report 14424872 (Version 1)
Quarter: 2018Q1

REPORT INFORMATION
  Report Type: Spontaneous
  Country: US (occurrence: US)
  Receive Date: 20180123
  Receipt Date: 20180123
  Transmission Date: 20180509
  Serious: No
  Sender: FDA-Public Use
  Company Number: US-OTSUKA-2017_026802

PATIENT
  Age: 3 Decade
  Sex: Female
  Weight: 47.62 kg

DRUGS (1)
  1. REXULTI [Suspect]
     Active Substance: BREXPIPRAZOLE
     Indication: PRODUCT USED FOR UNKNOWN INDICATION
     Dosage: 2 MG, UNK
     Route: 065
     Dates: start: 2017, end: 2017

REACTIONS (3)
  - Weight increased [Unknown]
  - Off label use [Unknown]
  - Hunger [Unknown]

NARRATIVE: CASE EVENT DATE: 2017
